FAERS Safety Report 8302659-5 (Version None)
Quarter: 2012Q2

REPORT INFORMATION
  Report Type: 
  Country: None (occurrence: None)
  Receive Date: 20120420
  Receipt Date: 20120410
  Transmission Date: 20120825
  Serious: Yes (Disabling)
  Sender: FDA-Public Use
  Company Number: US-ELI_LILLY_AND_COMPANY-US201204004098

PATIENT
  Sex: Male

DRUGS (3)
  1. INSULIN [Concomitant]
     Dosage: UNK
  2. HUMALOG [Suspect]
     Indication: DIABETES MELLITUS
     Dosage: SLIDING SCALE
  3. HUMALOG [Suspect]
     Dosage: SLIDING SCALE

REACTIONS (2)
  - BLOOD GLUCOSE INCREASED [None]
  - TREMOR [None]
